FAERS Safety Report 14650605 (Version 1)
Quarter: 2018Q1

REPORT INFORMATION
  Report Type: Spontaneous
  Country: CA (occurrence: CA)
  Receive Date: 20180316
  Receipt Date: 20180316
  Transmission Date: 20180509
  Serious: Yes (Hospitalization, Other)
  Sender: FDA-Public Use
  Company Number: CA-TEVA-2018-CA-868407

PATIENT
  Age: 12 Year
  Sex: Male
  Weight: 69 kg

DRUGS (2)
  1. KEPPRA [Concomitant]
     Active Substance: LEVETIRACETAM
  2. CARBAMAZEPINE. [Suspect]
     Active Substance: CARBAMAZEPINE
     Indication: EPILEPSY
     Dosage: 800 MILLIGRAM DAILY;
     Route: 048

REACTIONS (3)
  - Mucosal inflammation [Recovered/Resolved]
  - Rash papular [Recovered/Resolved]
  - Eosinophil count increased [Recovered/Resolved]
